FAERS Safety Report 4315307-6 (Version None)
Quarter: 2004Q1

REPORT INFORMATION
  Report Type: 
  Country: None (occurrence: None)
  Receive Date: 20040311
  Receipt Date: 20040302
  Transmission Date: 20041129
  Serious: Yes (Hospitalization)
  Sender: FDA-Public Use
  Company Number: 200410858FR

PATIENT
  Age: 67 Year
  Sex: Male
  Weight: 70 kg

DRUGS (5)
  1. RIFADIN [Suspect]
     Indication: OSTEOARTHRITIS
     Route: 048
     Dates: start: 20030101
  2. RIFADIN [Suspect]
     Indication: STAPHYLOCOCCAL INFECTION
     Route: 048
     Dates: start: 20030101
  3. OFLOCET [Suspect]
     Indication: OSTEOARTHRITIS
     Route: 048
     Dates: start: 20030101
  4. OFLOCET [Suspect]
     Indication: STAPHYLOCOCCAL INFECTION
     Route: 048
     Dates: start: 20030101
  5. PLAVIX [Concomitant]
     Route: 048
     Dates: start: 20030715

REACTIONS (6)
  - HYPOSIDERAEMIA [None]
  - NORMOCHROMIC NORMOCYTIC ANAEMIA [None]
  - PANCYTOPENIA [None]
  - SCLERODERMA [None]
  - SKIN ULCER [None]
  - TRANSFERRIN DECREASED [None]
